FAERS Safety Report 4899489-3 (Version None)
Quarter: 2006Q1

REPORT INFORMATION
  Report Type: 
  Country: None (occurrence: None)
  Receive Date: 20060118
  Receipt Date: 20050617
  Transmission Date: 20060701
  Serious: No
  Sender: FDA-Public Use
  Company Number: 2005001150

PATIENT
  Age: 87 Year
  Sex: Female

DRUGS (7)
  1. TARCEVA [Suspect]
     Indication: NON-SMALL CELL LUNG CANCER
     Dosage: 150 MG (QD), ORAL
     Route: 048
     Dates: start: 20050526
  2. OXYGEN (OXYGEN) [Concomitant]
  3. QUINAPRIL HCL [Concomitant]
  4. FELODIPINE [Concomitant]
  5. ZOCOR [Concomitant]
  6. VESACARE [Concomitant]
  7. PROTONIX [Concomitant]

REACTIONS (12)
  - ANOREXIA [None]
  - CONFUSIONAL STATE [None]
  - DISORIENTATION [None]
  - DRY SKIN [None]
  - DYSPEPSIA [None]
  - DYSPNOEA [None]
  - LISTLESS [None]
  - PRURITUS [None]
  - RASH [None]
  - SKIN EXFOLIATION [None]
  - STOMACH DISCOMFORT [None]
  - VISION BLURRED [None]
